FAERS Safety Report 7269009-7 (Version None)
Quarter: 2011Q1

REPORT INFORMATION
  Report Type: 
  Country: None (occurrence: None)
  Receive Date: 20110202
  Receipt Date: 20110121
  Transmission Date: 20110831
  Serious: Yes (Hospitalization)
  Sender: FDA-Public Use
  Company Number: US-BIOGENIDEC-2010BI040018

PATIENT
  Age: 42 Year
  Sex: Female

DRUGS (22)
  1. REMERON [Concomitant]
  2. EFFEXOR [Concomitant]
     Indication: PAIN
     Dates: start: 20100101
  3. TRAMADOL HCL [Concomitant]
  4. TYSABRI [Suspect]
     Indication: MULTIPLE SCLEROSIS
     Route: 042
     Dates: start: 20100312
  5. SENNA [Concomitant]
  6. VYVANSE [Concomitant]
     Indication: FATIGUE
  7. ASPIRIN [Concomitant]
  8. LIDODERM [Concomitant]
     Route: 062
  9. SPIRONOLACTONE [Concomitant]
  10. FENTANYL-100 [Concomitant]
     Route: 062
  11. FLONASE [Concomitant]
  12. NORVASC [Concomitant]
  13. ZANAFLEX [Concomitant]
  14. NUVIGIL [Concomitant]
  15. XYZAL [Concomitant]
  16. NUVIGIL [Concomitant]
     Indication: FATIGUE
  17. ALBUTEROL [Concomitant]
  18. COZAAR [Concomitant]
  19. NEXIUM [Concomitant]
  20. TOPROL-XL [Concomitant]
  21. ADVAIR [Concomitant]
  22. AMPYRA [Concomitant]

REACTIONS (16)
  - FATIGUE [None]
  - HYPOAESTHESIA FACIAL [None]
  - PAIN [None]
  - NASOPHARYNGITIS [None]
  - HEADACHE [None]
  - CONTUSION [None]
  - MULTIPLE SCLEROSIS RELAPSE [None]
  - CONVERSION DISORDER [None]
  - MOBILITY DECREASED [None]
  - FALL [None]
  - SINUSITIS [None]
  - WEIGHT DECREASED [None]
  - URINARY TRACT INFECTION [None]
  - EYE PAIN [None]
  - BLADDER DISORDER [None]
  - ADVERSE DRUG REACTION [None]
